FAERS Safety Report 4645067-0 (Version None)
Quarter: 2005Q2

REPORT INFORMATION
  Report Type: 
  Country: None (occurrence: None)
  Receive Date: 20050422
  Receipt Date: 20050415
  Transmission Date: 20051028
  Serious: Yes (Hospitalization)
  Sender: FDA-Public Use
  Company Number: MEDI-0003033

PATIENT
  Age: 2 Month
  Sex: Male

DRUGS (2)
  1. SYNAGIS [Suspect]
     Indication: ANTIVIRAL PROPHYLAXIS
     Dosage: SEE IMAGE
     Route: 030
     Dates: start: 20050203, end: 20050203
  2. SYNAGIS [Suspect]
     Indication: ANTIVIRAL PROPHYLAXIS
     Dosage: SEE IMAGE
     Route: 030
     Dates: start: 20050302

REACTIONS (5)
  - BALANITIS [None]
  - PHIMOSIS [None]
  - RESPIRATORY DISTRESS [None]
  - SEPSIS [None]
  - URINARY TRACT INFECTION ENTEROCOCCAL [None]
